FAERS Safety Report 6181152-2 (Version None)
Quarter: 2009Q2

REPORT INFORMATION
  Report Type: 
  Country: None (occurrence: None)
  Receive Date: 20090504
  Receipt Date: 20090504
  Transmission Date: 20091009
  Serious: Yes (Hospitalization)
  Sender: FDA-Public Use
  Company Number: None

PATIENT
  Age: 68 Year
  Sex: Female
  Weight: 62.5964 kg

DRUGS (4)
  1. TOPROL-XL [Suspect]
     Dosage: 37.5MG DAILY PO
     Route: 048
  2. NEXIUM [Concomitant]
  3. ZETIA [Concomitant]
  4. SYNTHROID [Concomitant]

REACTIONS (3)
  - DISEASE PROGRESSION [None]
  - FATIGUE [None]
  - MITRAL VALVE INCOMPETENCE [None]
